FAERS Safety Report 19756648 (Version 1)
Quarter: 2021Q3

REPORT INFORMATION
  Report Type: Spontaneous
  Country: DE (occurrence: DE)
  Receive Date: 20210827
  Receipt Date: 20210827
  Transmission Date: 20211014
  Serious: Yes (Hospitalization, Other)
  Sender: FDA-Public Use
  Company Number: DE-009507513-2108DEU006094

PATIENT
  Age: 75 Year
  Sex: Male
  Weight: 107 kg

DRUGS (7)
  1. TORASEMID AAA?PHARMA [Concomitant]
     Active Substance: TORSEMIDE
     Dosage: 40 MILLIGRAM, QD, 2?2?0?0; LONG?TERM MEDICATION
  2. VALSARTAN. [Concomitant]
     Active Substance: VALSARTAN
     Dosage: 80 MILLIGRAM, QD, 1?0?0?0; LONG?TERM MEDICATION
  3. XELEVIA [Suspect]
     Active Substance: SITAGLIPTIN PHOSPHATE
     Indication: TYPE 2 DIABETES MELLITUS
     Dosage: 100 MILLIGRAM, QD, 1?0?0
     Dates: end: 20210721
  4. SULTANOL [Concomitant]
     Active Substance: ALBUTEROL SULFATE
     Dosage: UNK
  5. PHENPROCOUMON [Concomitant]
     Active Substance: PHENPROCOUMON
     Indication: ATRIAL FIBRILLATION
     Dosage: UNK
  6. METOHEXAL SUCC [Concomitant]
     Active Substance: METOPROLOL SUCCINATE
     Dosage: 190 MILLIGRAM, QD, 1/2 ? 0 ? 1/2 ? 0; EXTENDED?RELEASE TABLETS; LONG?TERM MEDICATION
  7. EUTHYROX [Concomitant]
     Active Substance: LEVOTHYROXINE SODIUM
     Dosage: 88 MICROGRAM, QD, 1?0?0?0; LONG?TERM MEDICATION

REACTIONS (3)
  - Blister [Unknown]
  - Pemphigoid [Unknown]
  - Pruritus [Unknown]

NARRATIVE: CASE EVENT DATE: 2021
